FAERS Safety Report 8134645-2 (Version None)
Quarter: 2012Q1

REPORT INFORMATION
  Report Type: 
  Country: None (occurrence: None)
  Receive Date: 20120214
  Receipt Date: 20120204
  Transmission Date: 20120608
  Serious: Yes (Hospitalization, Other)
  Sender: FDA-Public Use
  Company Number: CA-JNJFOC-20120203390

PATIENT
  Sex: Male
  Weight: 67 kg

DRUGS (4)
  1. REMICADE [Suspect]
     Indication: COLITIS ULCERATIVE
     Route: 042
  2. PURINETHOL [Concomitant]
     Route: 065
  3. CALCIUM 500 + D [Concomitant]
     Route: 065
  4. PREDNISONE TAB [Concomitant]
     Route: 065

REACTIONS (1)
  - NEPHROTIC SYNDROME [None]
